FAERS Safety Report 23302887 (Version 2)
Quarter: 2023Q4

REPORT INFORMATION
  Report Type: Spontaneous
  Country: US (occurrence: US)
  Receive Date: 20231215
  Receipt Date: 20231225
  Transmission Date: 20240110
  Serious: Yes (Other)
  Sender: FDA-Public Use
  Company Number: US-JNJFOC-20231224623

PATIENT
  Sex: Male

DRUGS (1)
  1. AVEENO ECZEMA THERAPY RESCUE RELIEF TREATMENT [Suspect]
     Active Substance: OATMEAL
     Indication: Skin disorder
     Dosage: QUARTER-SIZED ONCE
     Route: 061
     Dates: start: 20231127

REACTIONS (2)
  - Skin disorder [Recovered/Resolved]
  - Drug ineffective [Unknown]

NARRATIVE: CASE EVENT DATE: 20231127
